FAERS Safety Report 9353904 (Version 1)
Quarter: 2013Q2

REPORT INFORMATION
  Report Type: Report from Study
  Country: CA (occurrence: CA)
  Receive Date: 20130618
  Receipt Date: 20130618
  Transmission Date: 20140414
  Serious: Yes (Hospitalization)
  Sender: FDA-Public Use
  Company Number: CA-JNJFOC-20130609890

PATIENT
  Sex: Male

DRUGS (8)
  1. REMICADE [Suspect]
     Indication: CROHN^S DISEASE
     Route: 042
     Dates: start: 20120906
  2. CITALOPRAM [Concomitant]
     Route: 065
  3. ZOPICLONE [Concomitant]
     Route: 065
  4. ATIVAN [Concomitant]
     Dosage: 0.5 SL PRN
     Route: 065
  5. PROZAC [Concomitant]
     Route: 065
  6. QUESTRAN [Concomitant]
     Dosage: 1 PKG
     Route: 065
  7. VITAMIN B12 [Concomitant]
     Route: 065
  8. CALCIUM WITH VITAMIN D [Concomitant]
     Route: 065

REACTIONS (1)
  - Anal fissure [Recovering/Resolving]
